FAERS Safety Report 14908055 (Version 7)
Quarter: 2021Q3

REPORT INFORMATION
  Report Type: Spontaneous
  Country: GB (occurrence: GB)
  Receive Date: 20180517
  Receipt Date: 20210903
  Transmission Date: 20211014
  Serious: Yes (Death, Life-Threatening, Hospitalization, Other)
  Sender: FDA-Public Use
  Company Number: GB-TEVA-2018-GB-892448

PATIENT
  Age: 71 Year
  Sex: Male

DRUGS (2)
  1. DEXAMETHASONE. [Suspect]
     Active Substance: DEXAMETHASONE
     Indication: PLASMA CELL MYELOMA
     Dosage: 10 MG, NOT AVAILABLE TIME INTERVAL BETWEEN BEGINNING OF DRUG ADMINI.
     Route: 065
     Dates: start: 20150603
  2. POMALIDOMIDE [Suspect]
     Active Substance: POMALIDOMIDE
     Indication: PLASMA CELL MYELOMA
     Dosage: 2 MG, NOT AVAILABLE TIME INTERVAL BETWEEN BEGINNING OF DRUG ADMINI.
     Route: 048
     Dates: start: 20150603

REACTIONS (3)
  - Pneumonia [Recovered/Resolved]
  - Septic shock [Recovered/Resolved]
  - Pneumonia pneumococcal [Recovered/Resolved]

NARRATIVE: CASE EVENT DATE: 20151105
